FAERS Safety Report 8129928-6 (Version None)
Quarter: 2012Q1

REPORT INFORMATION
  Report Type: 
  Country: None (occurrence: None)
  Receive Date: 20120210
  Receipt Date: 20120206
  Transmission Date: 20120608
  Serious: Yes (Hospitalization, Other)
  Sender: FDA-Public Use
  Company Number: EE-PFIZER INC-K201100585

PATIENT
  Age: 52 Year
  Sex: Male

DRUGS (5)
  1. OMEPRAZOLE [Interacting]
     Dosage: 20 MG, 1X/DAY
     Route: 048
  2. ALTACE [Suspect]
     Dosage: 20 MG, 1X/DAY
     Route: 048
  3. METOPROLOL [Interacting]
     Dosage: 25 MG, 1X/DAY
     Route: 048
  4. CLOPIDOGREL [Interacting]
     Dosage: 75 MG, 1X/DAY
     Route: 048
  5. SIMVASTATIN [Interacting]
     Dosage: 20 MG, 1X/DAY
     Route: 048

REACTIONS (3)
  - CONSTIPATION [None]
  - DRUG INTERACTION [None]
  - ILEUS [None]
